FAERS Safety Report 8246782-2 (Version None)
Quarter: 2012Q1

REPORT INFORMATION
  Report Type: 
  Country: None (occurrence: None)
  Receive Date: 20120330
  Receipt Date: 20120323
  Transmission Date: 20120608
  Serious: Yes (Death, Other)
  Sender: FDA-Public Use
  Company Number: DK-PFIZER INC-2011256685

PATIENT
  Age: 69 Year
  Sex: Female

DRUGS (11)
  1. CORDARONE [Interacting]
     Indication: ATRIAL FIBRILLATION
     Dosage: 200 MG, DAILY
     Route: 048
     Dates: start: 20100612
  2. IBUPROFEN [Concomitant]
     Indication: PAIN
     Dosage: UNK
     Dates: start: 20110415
  3. ZOPICLONE [Concomitant]
     Indication: INSOMNIA
     Dosage: UNK
     Dates: start: 20110413
  4. CIPROFLOXACIN [Suspect]
     Indication: URINARY TRACT INFECTION
     Dosage: 500 MG, 2X/DAY
     Route: 048
     Dates: start: 20110414
  5. PRIMPERAN TAB [Interacting]
     Dosage: UNK
     Dates: start: 20110315
  6. WARFARIN [Concomitant]
     Dosage: UNK
     Dates: start: 20100312
  7. PAMOL [Concomitant]
     Dosage: UNK
     Dates: start: 20100312
  8. ATORVASTATIN [Concomitant]
     Dosage: UNK
     Dates: start: 20100312
  9. FEXOFENADINE HCL [Suspect]
     Indication: RHINITIS ALLERGIC
     Dosage: 180 MG, DAILY
     Route: 048
     Dates: start: 20090312
  10. PRIMPERAN TAB [Interacting]
     Indication: NAUSEA
     Dosage: UNK
     Route: 065
     Dates: start: 20110315
  11. CODEINE [Concomitant]
     Dosage: UNK
     Dates: start: 20110414

REACTIONS (5)
  - ARRHYTHMIA [None]
  - TOXICITY TO VARIOUS AGENTS [None]
  - ELECTROCARDIOGRAM QT PROLONGED [None]
  - DRUG INTERACTION [None]
  - DRUG LEVEL INCREASED [None]
